FAERS Safety Report 21139910 (Version 1)
Quarter: 2022Q3

REPORT INFORMATION
  Report Type: Spontaneous
  Country: ES (occurrence: ES)
  Receive Date: 20220728
  Receipt Date: 20220728
  Transmission Date: 20221027
  Serious: Yes (Other)
  Sender: FDA-Public Use
  Company Number: None

PATIENT
  Age: 77 Year
  Sex: Male

DRUGS (10)
  1. TICAGRELOR [Suspect]
     Active Substance: TICAGRELOR
     Indication: Acute myocardial infarction
     Dosage: 1.0 COMP A-DECE, TICAGRELOR (8461A)
     Route: 065
     Dates: start: 20220315
  2. MICARDIS [Concomitant]
     Active Substance: TELMISARTAN
     Indication: Essential hypertension
     Dosage: 80.0 MG DE, 28 TABLETS, STRENGTH  :80MG
     Dates: start: 20111229
  3. ASPIRIN [Concomitant]
     Active Substance: ASPIRIN
     Indication: Coronary artery bypass
     Dosage: 100.0 MG DE, STRENGTH : 100 MG,  GASTRO-RESISTANT TABLETS EFG, 30 TABLETS (PVC- ALUMINUM)
     Dates: start: 20111125
  4. CRESTOR [Concomitant]
     Active Substance: ROSUVASTATIN CALCIUM
     Indication: Acute myocardial infarction
     Dosage: 20.0 MG CE,  28 TABLETS, STRENGTH  :20 MG
     Dates: start: 20220315
  5. DUTASTERIDE [Concomitant]
     Active Substance: DUTASTERIDE
     Indication: Benign prostatic hyperplasia
     Dosage: 0.5 MG DE, 30 CAPSULES, STRENGTH : 0.5MG
     Dates: start: 20191001
  6. CICLOPIROX [Concomitant]
     Active Substance: CICLOPIROX
     Indication: Seborrhoeic dermatitis
     Dosage: 2.0 APPLY W/72 HOURS, 15 MG/G SHAMPOO, 1 BOTTLE OF 100 ML
     Dates: start: 20180808
  7. MIRTAZAPINE FLAS RATIOPHARM [Concomitant]
     Indication: Persistent depressive disorder
     Dosage: 15.0 MG C/24 H NOC, STRENGTH :15 MG , ORODISPERSABLE TABLETS EFG, 30 TABLETS
     Dates: start: 20160622
  8. BISOPROLOL FUMARATE [Concomitant]
     Active Substance: BISOPROLOL FUMARATE
     Indication: Acute myocardial infarction
     Dosage: 2.5 MG DE,  STRENGTH :2.5 MG,  FILM-COATED TABLETS EFG, 28 TABLETS
     Dates: start: 20220316
  9. OMEPRAZOL RATIO [Concomitant]
     Indication: Gastritis
     Dosage: 20.0 MG A-DECE, STRENGTH : 20 MG , HARD GASTRO-RESISTANT CAPSULES EFG, 56 CAPSULES
     Dates: start: 20111125
  10. FLUOXETINE CINFA [Concomitant]
     Indication: Persistent depressive disorder
     Dosage: 20.0 MG DE, STRENGTH : 20 MG , HARD CAPSULES EFG, 60 CAPSULES
     Dates: start: 20111125

REACTIONS (1)
  - Dyspnoea [Recovering/Resolving]

NARRATIVE: CASE EVENT DATE: 20220317
